FAERS Safety Report 7898015-4 (Version None)
Quarter: 2011Q4

REPORT INFORMATION
  Report Type: 
  Country: None (occurrence: None)
  Receive Date: 20111107
  Receipt Date: 20111107
  Transmission Date: 20120403
  Serious: Yes (Other)
  Sender: FDA-Public Use
  Company Number: None

PATIENT
  Age: 64 Year
  Sex: Male
  Weight: 95.254 kg

DRUGS (1)
  1. AMBIEN [Suspect]
     Indication: INSOMNIA
     Dosage: ?
     Route: 002
     Dates: start: 20101015, end: 20101018

REACTIONS (3)
  - BARRETT'S OESOPHAGUS [None]
  - HIATUS HERNIA [None]
  - HEADACHE [None]
